FAERS Safety Report 9266773 (Version 1)
Quarter: 2013Q2

REPORT INFORMATION
  Report Type: Spontaneous
  Country: US (occurrence: US)
  Receive Date: 20130502
  Receipt Date: 20130502
  Transmission Date: 20140414
  Serious: Yes (Other)
  Sender: FDA-Public Use
  Company Number: US-PFIZER INC-2013135052

PATIENT
  Age: 78 Year
  Sex: Male
  Weight: 68.03 kg

DRUGS (7)
  1. LYRICA [Suspect]
     Indication: HERPES ZOSTER
     Dosage: ONCE A DAY
     Route: 048
  2. XARELTO [Concomitant]
     Dosage: UNK
  3. LORATADINE [Concomitant]
     Dosage: UNK
  4. MELOXICAM [Concomitant]
     Dosage: UNK
  5. SIMVASTATIN [Concomitant]
     Dosage: UNK
  6. HYDROXYZINE [Concomitant]
     Dosage: UNK
  7. VESICARE [Concomitant]
     Dosage: UNK

REACTIONS (3)
  - Herpes zoster [Unknown]
  - Haemoglobin decreased [Unknown]
  - Somnambulism [Unknown]
